FAERS Safety Report 8231827-6 (Version None)
Quarter: 2012Q1

REPORT INFORMATION
  Report Type: 
  Country: None (occurrence: None)
  Receive Date: 20120323
  Receipt Date: 20120320
  Transmission Date: 20120608
  Serious: No
  Sender: FDA-Public Use
  Company Number: US-PFIZER INC-2012073547

PATIENT
  Sex: Male
  Weight: 108 kg

DRUGS (4)
  1. VERAPAMIL [Concomitant]
     Indication: BLOOD PRESSURE ABNORMAL
     Dosage: 300 MG, DAILY
  2. OXYCODONE HYDROCHLORIDE [Suspect]
     Indication: BACK PAIN
     Dosage: 10 MG, AS NEEDED (UP TO 4 TIMES A DAY)
  3. RAMIPRIL [Concomitant]
     Indication: BLOOD PRESSURE ABNORMAL
     Dosage: 10 MG, DAILY
  4. CHANTIX [Suspect]
     Indication: SMOKING CESSATION THERAPY
     Dosage: 0.5 MG, DAILY
     Route: 048
     Dates: start: 20120316

REACTIONS (2)
  - CONSTIPATION [None]
  - FATIGUE [None]
